FAERS Safety Report 8912989 (Version 1)
Quarter: 2012Q4

REPORT INFORMATION
  Report Type: Spontaneous
  Country: US (occurrence: None)
  Receive Date: 20121114
  Receipt Date: 20121114
  Transmission Date: 20130627
  Serious: Yes (Other)
  Sender: FDA-Public Use
  Company Number: None

PATIENT
  Age: 69 Year
  Sex: Female
  Weight: 68.04 kg

DRUGS (1)
  1. PANTOPRAZOLE [Suspect]
     Indication: GERD
     Dosage: 40 MG TWICE A DAY PO
     Route: 048
     Dates: start: 20050501, end: 20121111

REACTIONS (5)
  - Fatigue [None]
  - Hyperglycaemia [None]
  - Hypoaesthesia [None]
  - Paraesthesia [None]
  - Nerve conduction studies abnormal [None]
